FAERS Safety Report 4764658-X (Version None)
Quarter: 2005Q3

REPORT INFORMATION
  Report Type: 
  Country: None (occurrence: None)
  Receive Date: 20050909
  Receipt Date: 20050905
  Transmission Date: 20060218
  Serious: Yes (Other)
  Sender: FDA-Public Use
  Company Number: GB-GLAXOSMITHKLINE-B0392848A

PATIENT
  Age: 39 Year
  Sex: Female
  Weight: 62 kg

DRUGS (4)
  1. ZOFRAN [Suspect]
     Indication: MALAISE
     Dosage: 1MG PER DAY
     Route: 042
     Dates: start: 20030108, end: 20030108
  2. FENTANYL [Concomitant]
     Dosage: 100MCG PER DAY
     Route: 042
     Dates: start: 20030108, end: 20030108
  3. ONDANSETRON [Concomitant]
     Dosage: 4MG PER DAY
     Route: 042
     Dates: start: 20030108, end: 20030108
  4. TRIMETHOPRIM [Concomitant]

REACTIONS (3)
  - HYPOAESTHESIA ORAL [None]
  - MUSCLE SPASMS [None]
  - PARAESTHESIA [None]
